FAERS Safety Report 13001287 (Version 4)
Quarter: 2020Q1

REPORT INFORMATION
  Report Type: Spontaneous
  Country: US (occurrence: US)
  Receive Date: 20161206
  Receipt Date: 20200213
  Transmission Date: 20200409
  Serious: Yes (Other)
  Sender: FDA-Public Use
  Company Number: US-PFIZER INC-2016558985

PATIENT
  Age: 80 Year
  Sex: Male

DRUGS (1)
  1. XELJANZ XR [Suspect]
     Active Substance: TOFACITINIB CITRATE
     Dosage: 11 MG, UNK

REACTIONS (10)
  - Suicidal ideation [Unknown]
  - Pain [Unknown]
  - Constipation [Unknown]
  - Joint swelling [Recovering/Resolving]
  - Confusional state [Unknown]
  - Hepatic enzyme increased [Unknown]
  - Arthralgia [Unknown]
  - Rectal spasm [Unknown]
  - Emotional disorder [Unknown]
  - Abdominal pain upper [Unknown]
